FAERS Safety Report 21388403 (Version 2)
Quarter: 2022Q4

REPORT INFORMATION
  Report Type: Spontaneous
  Country: US (occurrence: US)
  Receive Date: 20220928
  Receipt Date: 20221225
  Transmission Date: 20230113
  Serious: Yes (Life-Threatening, Hospitalization, Other)
  Sender: FDA-Public Use
  Company Number: US-BRISTOL-MYERS SQUIBB COMPANY-2022-112160

PATIENT
  Age: 66 Year
  Sex: Male
  Weight: 90.4 kg

DRUGS (2)
  1. NIVOLUMAB [Suspect]
     Active Substance: NIVOLUMAB
     Indication: Bladder adenocarcinoma stage unspecified
     Dosage: STRENGTH 3MG/KG
     Dates: start: 20220816
  2. IPILIMUMAB [Suspect]
     Active Substance: IPILIMUMAB
     Indication: Bladder adenocarcinoma stage unspecified
     Dosage: STRENGTH 1MG/KG
     Dates: start: 20220816

REACTIONS (3)
  - Diabetic ketoacidosis [Unknown]
  - Pneumonia aspiration [Unknown]
  - Off label use [Unknown]

NARRATIVE: CASE EVENT DATE: 20220925
